FAERS Safety Report 13612843 (Version 1)
Quarter: 2017Q2

REPORT INFORMATION
  Report Type: Spontaneous
  Country: FR (occurrence: FR)
  Receive Date: 20170605
  Receipt Date: 20170605
  Transmission Date: 20170830
  Serious: Yes (Death, Life-Threatening)
  Sender: FDA-Public Use
  Company Number: FR-TEVA-772406ROM

PATIENT
  Age: 77 Year
  Sex: Male

DRUGS (14)
  1. ATROVENT [Concomitant]
     Active Substance: IPRATROPIUM BROMIDE
     Dosage: 3 DOSAGE FORMS DAILY; DOSAGE FORM= PUFF
  2. ROCEPHINE [Concomitant]
     Active Substance: CEFTRIAXONE SODIUM
     Dosage: 2 GRAM DAILY; USUAL TREATMENT
  3. LASILIX [Concomitant]
     Active Substance: FUROSEMIDE
     Dosage: 125 MILLIGRAM DAILY; USUAL TREATMENT
     Route: 042
  4. BRICANYL [Concomitant]
     Active Substance: TERBUTALINE SULFATE
     Dosage: 3 DOSAGE FORMS DAILY; DOSAGE FORM= PUFF
  5. AMLOR [Concomitant]
     Active Substance: AMLODIPINE BESYLATE
     Dosage: 5 MILLIGRAM DAILY;
  6. ETOPOSIDE TEVA [Suspect]
     Active Substance: ETOPOSIDE
     Indication: PRIMARY MEDIASTINAL LARGE B-CELL LYMPHOMA STAGE III
     Route: 042
     Dates: start: 20160811, end: 20160812
  7. MITOXANTRONE TEVA [Suspect]
     Active Substance: MITOXANTRONE HYDROCHLORIDE
     Indication: PRIMARY MEDIASTINAL LARGE B-CELL LYMPHOMA STAGE III
     Route: 042
     Dates: start: 20160811, end: 20160811
  8. MICARDIS [Concomitant]
     Active Substance: TELMISARTAN
  9. HEPARIN [Concomitant]
     Active Substance: HEPARIN SODIUM
     Dosage: 33000 IU (INTERNATIONAL UNIT) DAILY;
  10. DIGOXIN. [Concomitant]
     Active Substance: DIGOXIN
     Dosage: 1 DOSAGE FORMS DAILY;
  11. ZOPHREN [Concomitant]
     Active Substance: ONDANSETRON
     Indication: PROPHYLAXIS OF NAUSEA AND VOMITING
     Route: 048
     Dates: start: 20160811, end: 20160812
  12. IFOSFAMIDE EG [Suspect]
     Active Substance: IFOSFAMIDE
     Indication: PRIMARY MEDIASTINAL LARGE B-CELL LYMPHOMA STAGE III
     Route: 042
     Dates: start: 20160811, end: 20160812
  13. PARACETAMOL [Concomitant]
     Active Substance: ACETAMINOPHEN
     Dosage: 4 GRAM DAILY;
  14. UROMITEXAN [Concomitant]
     Active Substance: MESNA

REACTIONS (2)
  - Condition aggravated [Not Recovered/Not Resolved]
  - Pancytopenia [Not Recovered/Not Resolved]

NARRATIVE: CASE EVENT DATE: 20160815
